FAERS Safety Report 4452774-1 (Version None)
Quarter: 2004Q3

REPORT INFORMATION
  Report Type: 
  Country: None (occurrence: None)
  Receive Date: 20040916
  Receipt Date: 20040906
  Transmission Date: 20050211
  Serious: Yes (Death, Other)
  Sender: FDA-Public Use
  Company Number: 2003125241

PATIENT
  Age: 14 Year
  Sex: Male
  Weight: 50 kg

DRUGS (6)
  1. VFEND [Suspect]
     Indication: ANTIFUNGAL PROPHYLAXIS
     Dosage: 2 IN 1 D, INTRAVENOUS
     Route: 042
     Dates: start: 20030531, end: 20030628
  2. ANTIFUNGALS (ANTIFUNGALS) [Concomitant]
  3. CASPOFUNGIN (CASPOFUNGIN) [Concomitant]
  4. ITRACONAZOLE [Concomitant]
  5. AMPHOTERICIN B [Concomitant]
  6. ANTIBIOTICS (ANTIBIOTICS) [Concomitant]

REACTIONS (5)
  - BACTERIAL INFECTION [None]
  - BRONCHOPULMONARY ASPERGILLOSIS [None]
  - CONDITION AGGRAVATED [None]
  - GRAFT VERSUS HOST DISEASE [None]
  - RESPIRATORY FAILURE [None]
